FAERS Safety Report 12646396 (Version 1)
Quarter: 2016Q3

REPORT INFORMATION
  Report Type: Spontaneous
  Country: KR (occurrence: KR)
  Receive Date: 20160812
  Receipt Date: 20160812
  Transmission Date: 20161109
  Serious: Yes (Other)
  Sender: FDA-Public Use
  Company Number: KR-009507513-1608KOR001372

PATIENT

DRUGS (2)
  1. WARFARIN [Suspect]
     Active Substance: WARFARIN
  2. SIMVASTATIN. [Suspect]
     Active Substance: SIMVASTATIN
     Route: 048

REACTIONS (1)
  - Gastrointestinal haemorrhage [Unknown]
